FAERS Safety Report 13521819 (Version 1)
Quarter: 2017Q2

REPORT INFORMATION
  Report Type: Spontaneous
  Country: US (occurrence: US)
  Receive Date: 20170508
  Receipt Date: 20170508
  Transmission Date: 20170830
  Serious: Yes (Other)
  Sender: FDA-Public Use
  Company Number: US-BAYER-2017-083643

PATIENT
  Sex: Male

DRUGS (1)
  1. AFRIN ORIGINAL [Suspect]
     Active Substance: OXYMETAZOLINE HYDROCHLORIDE

REACTIONS (3)
  - Drug use disorder [Unknown]
  - Therapeutic response unexpected [Unknown]
  - Product use issue [Unknown]
